FAERS Safety Report 9281083 (Version 3)
Quarter: 2013Q2

REPORT INFORMATION
  Report Type: Spontaneous
  Country: AT (occurrence: AT)
  Receive Date: 20130509
  Receipt Date: 20130612
  Transmission Date: 20140414
  Serious: Yes (Hospitalization, Other)
  Sender: FDA-Public Use
  Company Number: AT-BAYER-2013-057535

PATIENT
  Sex: Female

DRUGS (1)
  1. MIRENA [Suspect]
     Dosage: 20 MCG/24HR, CONT
     Route: 015
     Dates: start: 2008, end: 2011

REACTIONS (6)
  - Major depression [None]
  - Abnormal weight gain [None]
  - Injury [None]
  - Mood swings [None]
  - Abdominal pain [None]
  - Vaginal haemorrhage [None]
